FAERS Safety Report 8890216 (Version 1)
Quarter: 2012Q4

REPORT INFORMATION
  Report Type: Report from Study
  Country: US (occurrence: US)
  Receive Date: 20121107
  Receipt Date: 20121107
  Transmission Date: 20130627
  Serious: Yes (Other)
  Sender: FDA-Public Use
  Company Number: US-JNJFOC-20121016720

PATIENT
  Age: 35 Year
  Sex: Male

DRUGS (6)
  1. REMICADE [Suspect]
     Indication: CROHN^S DISEASE
     Route: 042
     Dates: start: 20120420, end: 201205
  2. REMICADE [Suspect]
     Indication: CROHN^S DISEASE
     Route: 042
     Dates: start: 201206
  3. PREDNISONE [Concomitant]
     Indication: CROHN^S DISEASE
     Route: 048
  4. AZATHIOPRINE [Concomitant]
     Indication: CROHN^S DISEASE
     Route: 048
  5. ZOFRAN [Concomitant]
     Indication: NAUSEA
     Route: 065
  6. IMODIUM [Concomitant]
     Indication: DIARRHOEA
     Route: 065

REACTIONS (6)
  - Therapeutic response decreased [Recovering/Resolving]
  - Weight decreased [Unknown]
  - Abscess [Not Recovered/Not Resolved]
  - Dyspepsia [Not Recovered/Not Resolved]
  - Photosensitivity reaction [Not Recovered/Not Resolved]
  - Insomnia [Not Recovered/Not Resolved]
